FAERS Safety Report 15499988 (Version 1)
Quarter: 2018Q4

REPORT INFORMATION
  Report Type: Spontaneous
  Country: US (occurrence: US)
  Receive Date: 20181015
  Receipt Date: 20181015
  Transmission Date: 20190205
  Serious: No
  Sender: FDA-Public Use
  Company Number: US-UNIQUE PHARMACEUTICAL LABORATORIES-2017RIS00233

PATIENT
  Age: 70 Year
  Sex: Male
  Weight: 92.97 kg

DRUGS (2)
  1. CETIRIZINE HYDROCHLORIDE. [Suspect]
     Active Substance: CETIRIZINE HYDROCHLORIDE
     Indication: PRURITUS
     Dosage: ONE OR TWO A DAY
     Route: 048
     Dates: end: 20170906
  2. LORATADINE. [Concomitant]
     Active Substance: LORATADINE
     Dosage: 1 UNK, UNK

REACTIONS (2)
  - Drug effect incomplete [Unknown]
  - Expired product administered [Recovered/Resolved]

NARRATIVE: CASE EVENT DATE: 20170903
